FAERS Safety Report 9550574 (Version 1)
Quarter: 2013Q3

REPORT INFORMATION
  Report Type: Spontaneous
  Country: US (occurrence: US)
  Receive Date: 20130924
  Receipt Date: 20130924
  Transmission Date: 20140515
  Serious: No
  Sender: FDA-Public Use
  Company Number: US-SANOFI-AVENTIS-2013SA035978

PATIENT
  Age: 46 Year
  Sex: Female

DRUGS (1)
  1. AUBAGIO [Suspect]
     Indication: MULTIPLE SCLEROSIS
     Route: 048
     Dates: start: 201302

REACTIONS (10)
  - Multiple sclerosis relapse [Unknown]
  - Wrong technique in drug usage process [Unknown]
  - Malaise [Unknown]
  - Dizziness [Unknown]
  - Nasal discomfort [Unknown]
  - Stomatitis [Unknown]
  - Paraesthesia [Unknown]
  - Hepatic enzyme increased [Not Recovered/Not Resolved]
  - Nausea [Recovering/Resolving]
  - Headache [Not Recovered/Not Resolved]
